FAERS Safety Report 5385629-9 (Version None)
Quarter: 2007Q3

REPORT INFORMATION
  Report Type: 
  Country: None (occurrence: None)
  Receive Date: 20070712
  Receipt Date: 20070628
  Transmission Date: 20080115
  Serious: Yes (Hospitalization)
  Sender: FDA-Public Use
  Company Number: JP-PFIZER INC-2007027636

PATIENT
  Sex: Male

DRUGS (3)
  1. MIGLITOL TABLET [Suspect]
     Indication: DIABETES MELLITUS
     Dosage: DAILY DOSE:100MG
     Route: 048
     Dates: start: 20070315, end: 20070318
  2. BASEN [Suspect]
     Indication: DIABETES MELLITUS
     Dosage: DAILY DOSE:.4MG
     Route: 048
     Dates: start: 20070312, end: 20070315
  3. NATEGLINIDE [Suspect]
     Indication: DIABETES MELLITUS
     Route: 048
     Dates: start: 20070318, end: 20070326

REACTIONS (1)
  - HEPATIC FUNCTION ABNORMAL [None]
